FAERS Safety Report 7186870-5 (Version None)
Quarter: 2010Q4

REPORT INFORMATION
  Report Type: 
  Country: None (occurrence: None)
  Receive Date: 20101222
  Receipt Date: 20101213
  Transmission Date: 20110411
  Serious: Yes (Other)
  Sender: FDA-Public Use
  Company Number: B0690476A

PATIENT
  Sex: Female

DRUGS (11)
  1. DILATREND [Suspect]
     Indication: PRODUCT USED FOR UNKNOWN INDICATION
     Dosage: 25MG PER DAY
     Route: 065
  2. DAPAMAX [Concomitant]
  3. TRIPELENNAMINE CITRATE [Concomitant]
  4. ASPIRIN [Concomitant]
  5. ELTROXIN [Concomitant]
  6. GLUCOPHAGE [Concomitant]
  7. PIOGLITAZONE [Concomitant]
  8. NOVAMIX [Concomitant]
  9. ARIMIDEX [Concomitant]
     Dates: start: 20081001
  10. XEFO [Concomitant]
  11. ATORVASTATIN CALCIUM [Concomitant]
     Dates: start: 20100705

REACTIONS (3)
  - BLOOD CHOLESTEROL INCREASED [None]
  - BREAST CANCER [None]
  - BREAST CANCER FEMALE [None]
